FAERS Safety Report 14979252 (Version 1)
Quarter: 2018Q2

REPORT INFORMATION
  Report Type: Report from Study
  Country: US (occurrence: US)
  Receive Date: 20180606
  Receipt Date: 20180606
  Transmission Date: 20180711
  Serious: Yes (Death)
  Sender: FDA-Public Use
  Company Number: US-PFIZER INC-2018228814

PATIENT

DRUGS (4)
  1. CARMUSTINE [Suspect]
     Active Substance: CARMUSTINE
     Indication: MALIGNANT GLIOMA
     Dosage: 100 MG/M2,  (1-H INFUSION APPROXIMATELY AN HOUR BEFORE THE FIRST CPT-11 DOSE OF EACH CYCLE)
  2. DEXAMETHASONE. [Concomitant]
     Active Substance: DEXAMETHASONE
     Indication: ANTIEMETIC SUPPORTIVE CARE
     Dosage: UNK UNK, CYCLIC  (BEFORE EACH WEEKLY DOSE OF CHEMOTHERAPY)
  3. IRINOTECAN HCL [Suspect]
     Active Substance: IRINOTECAN HYDROCHLORIDE
     Indication: MALIGNANT GLIOMA
     Dosage: UNK, WEEKLY (CPT-11 WAS GIVEN WEEKLY FOR 4 WEEKS)
  4. ONDANSETRON [Concomitant]
     Active Substance: ONDANSETRON
     Indication: ANTIEMETIC SUPPORTIVE CARE
     Dosage: UNK UNK, CYCLIC  (BEFORE EACH WEEKLY DOSE OF CHEMOTHERAPY)

REACTIONS (1)
  - Sepsis [Fatal]
